FAERS Safety Report 18312689 (Version 1)
Quarter: 2020Q3

REPORT INFORMATION
  Report Type: Spontaneous
  Country: CA (occurrence: CA)
  Receive Date: 20200925
  Receipt Date: 20200925
  Transmission Date: 20201103
  Serious: Yes (Death)
  Sender: FDA-Public Use
  Company Number: CA-FRESENIUS KABI-FK202009896

PATIENT
  Age: 73 Year
  Sex: Male

DRUGS (3)
  1. DEXAMETHASONE. [Suspect]
     Active Substance: DEXAMETHASONE
     Indication: NERVE BLOCK
     Route: 042
  2. CEFRADINE [Suspect]
     Active Substance: CEPHRADINE
     Indication: NERVE BLOCK
     Route: 042
  3. MIDAZOLAM (MANUFACTURER UNKNOWN) [Suspect]
     Active Substance: MIDAZOLAM HYDROCHLORIDE
     Indication: NERVE BLOCK
     Route: 042

REACTIONS (11)
  - Cardio-respiratory arrest [Fatal]
  - Loss of consciousness [Fatal]
  - Anaphylactic reaction [Fatal]
  - Brain death [Fatal]
  - Vital functions abnormal [Fatal]
  - Dyspnoea [Fatal]
  - Electrolyte imbalance [Fatal]
  - Endotracheal intubation [Fatal]
  - Renal failure [Fatal]
  - Metabolic acidosis [Fatal]
  - Cardiac arrest [Fatal]
